FAERS Safety Report 15090576 (Version 1)
Quarter: 2018Q2

REPORT INFORMATION
  Report Type: Spontaneous
  Country: US (occurrence: US)
  Receive Date: 20180629
  Receipt Date: 20180629
  Transmission Date: 20180711
  Serious: No
  Sender: FDA-Public Use
  Company Number: US-PFIZER INC-2018261727

PATIENT
  Age: 36 Year
  Sex: Female

DRUGS (2)
  1. DOCETAXEL. [Suspect]
     Active Substance: DOCETAXEL
     Indication: BREAST CANCER
     Dosage: 110 MG, CYCLIC (6 CYCLES, EVERY 3 WEEKS)
     Dates: start: 20090827, end: 20091210
  2. NEOSAR [Concomitant]
     Active Substance: CYCLOPHOSPHAMIDE
     Indication: BREAST CANCER

REACTIONS (1)
  - Alopecia [Unknown]
